FAERS Safety Report 9776322 (Version 1)
Quarter: 2013Q4

REPORT INFORMATION
  Report Type: Spontaneous
  Country: US (occurrence: US)
  Receive Date: 20131220
  Receipt Date: 20131220
  Transmission Date: 20140711
  Serious: Yes (Other)
  Sender: FDA-Public Use
  Company Number: US-MYLANLABS-2013S1027795

PATIENT
  Sex: 0

DRUGS (1)
  1. ATORVASTATIN [Suspect]
     Dosage: 40 MG DAILY
     Route: 065

REACTIONS (1)
  - Hepatitis B [Recovering/Resolving]
